FAERS Safety Report 16776579 (Version 2)
Quarter: 2019Q4

REPORT INFORMATION
  Report Type: Spontaneous
  Country: US (occurrence: US)
  Receive Date: 20190905
  Receipt Date: 20191104
  Transmission Date: 20200122
  Serious: No
  Sender: FDA-Public Use
  Company Number: US-BAUSCH-BL-2019-023465

PATIENT
  Age: 41 Year
  Sex: Female

DRUGS (3)
  1. RETIN-A MICRO [Suspect]
     Active Substance: TRETINOIN
     Dosage: DOSE REDUCED?BEGAN ONLY APPLYING TO SELECT SPOTS ON HER FACE RATHER THAN THE WHOLE FACE
     Route: 061
     Dates: start: 20190725
  2. RETIN-A MICRO [Suspect]
     Active Substance: TRETINOIN
     Route: 061
     Dates: start: 20190704, end: 201907
  3. RETIN-A MICRO [Suspect]
     Active Substance: TRETINOIN
     Indication: ACNE
     Dosage: STARTED 2 YEARS AGO, 1 RAZOR THIN APPLICATION TO THE FACE IN THE MORNING
     Route: 061

REACTIONS (3)
  - Product physical consistency issue [Unknown]
  - Erythema [Unknown]
  - Adverse drug reaction [Unknown]

NARRATIVE: CASE EVENT DATE: 201907
